FAERS Safety Report 17092465 (Version 1)
Quarter: 2019Q4

REPORT INFORMATION
  Report Type: Spontaneous
  Country: IT (occurrence: IT)
  Receive Date: 20191129
  Receipt Date: 20191129
  Transmission Date: 20200122
  Serious: Yes (Hospitalization, Other)
  Sender: FDA-Public Use
  Company Number: IT-SA-2019SA326736

PATIENT
  Age: 45 Year
  Sex: Female

DRUGS (2)
  1. ALEMTUZUMAB [Suspect]
     Active Substance: ALEMTUZUMAB
     Dosage: 12 MG, QD
     Route: 041
     Dates: start: 201607, end: 2016
  2. ALEMTUZUMAB [Suspect]
     Active Substance: ALEMTUZUMAB
     Indication: RELAPSING-REMITTING MULTIPLE SCLEROSIS
     Dosage: 12 MG, QD
     Route: 041
     Dates: start: 201709, end: 2017

REACTIONS (15)
  - Gingival bleeding [Recovered/Resolved]
  - Confusional state [Recovered/Resolved]
  - Aphasia [Recovered/Resolved]
  - Cognitive disorder [Recovered/Resolved]
  - Vomiting [Recovered/Resolved]
  - Clonus [Recovered/Resolved]
  - Encephalitis autoimmune [Recovered/Resolved]
  - Brain oedema [Recovered/Resolved]
  - Memory impairment [Recovered/Resolved]
  - Apraxia [Recovered/Resolved]
  - Partial seizures [Recovered/Resolved]
  - Immune thrombocytopenic purpura [Recovered/Resolved]
  - Menorrhagia [Recovered/Resolved]
  - Rash macular [Recovered/Resolved]
  - Mood altered [Recovered/Resolved]

NARRATIVE: CASE EVENT DATE: 2018
